FAERS Safety Report 9929624 (Version 1)
Quarter: 2014Q1

REPORT INFORMATION
  Report Type: Spontaneous
  Country: DE (occurrence: DE)
  Receive Date: 20140227
  Receipt Date: 20140227
  Transmission Date: 20141002
  Serious: Yes (Other)
  Sender: FDA-Public Use
  Company Number: DE-JHP PHARMACEUTICALS, LLC-JHP201400060

PATIENT
  Age: 22 Year
  Sex: Female

DRUGS (1)
  1. ETOMIDATE [Suspect]
     Indication: EPILEPSY
     Dosage: 0.1 MG/KG, UNK
     Route: 042

REACTIONS (1)
  - Epilepsy [Recovered/Resolved]
